FAERS Safety Report 8301665-4 (Version None)
Quarter: 2012Q1

REPORT INFORMATION
  Report Type: 
  Country: None (occurrence: None)
  Receive Date: 20120326
  Receipt Date: 20110721
  Transmission Date: 20120608
  Serious: Yes (Other)
  Sender: FDA-Public Use
  Company Number: PHHY2011US66180

PATIENT
  Age: 57 Year
  Sex: Female

DRUGS (1)
  1. TASIGNA [Suspect]
     Indication: CHRONIC MYELOID LEUKAEMIA
     Dosage: 400 MG, BID, ORAL
     Route: 048

REACTIONS (4)
  - LEUKOCYTOSIS [None]
  - NEUTROPHILIA [None]
  - HYPOTHYROIDISM [None]
  - LYMPHOCYTOSIS [None]
